FAERS Safety Report 6940659-8 (Version None)
Quarter: 2010Q3

REPORT INFORMATION
  Report Type: 
  Country: None (occurrence: None)
  Receive Date: 20100825
  Receipt Date: 20100811
  Transmission Date: 20110219
  Serious: Yes (Hospitalization)
  Sender: FDA-Public Use
  Company Number: JP-ROCHE-660536

PATIENT
  Sex: Female
  Weight: 41 kg

DRUGS (22)
  1. TOCILIZUMAB [Suspect]
     Indication: RHEUMATOID ARTHRITIS
     Route: 041
     Dates: start: 20080815, end: 20080815
  2. TOCILIZUMAB [Suspect]
     Route: 041
     Dates: start: 20080912, end: 20080912
  3. TOCILIZUMAB [Suspect]
     Route: 041
     Dates: start: 20081010, end: 20081010
  4. TOCILIZUMAB [Suspect]
     Route: 041
     Dates: start: 20081107, end: 20081107
  5. TOCILIZUMAB [Suspect]
     Route: 041
     Dates: start: 20081205, end: 20081205
  6. TOCILIZUMAB [Suspect]
     Route: 041
     Dates: start: 20090109, end: 20090109
  7. TOCILIZUMAB [Suspect]
     Route: 041
     Dates: start: 20090206, end: 20090206
  8. METHOTREXATE [Suspect]
     Indication: RHEUMATOID ARTHRITIS
     Route: 048
     Dates: start: 20080620
  9. METHOTREXATE [Suspect]
     Route: 048
  10. METHOTREXATE [Suspect]
     Dosage: DISCONTINUED
     Route: 048
     Dates: start: 20080830, end: 20090906
  11. PREDNISOLONE [Concomitant]
     Dosage: DOSE FORM: PER ORAL AGENT
     Route: 048
     Dates: end: 20081106
  12. PREDNISOLONE [Concomitant]
     Dosage: DOSE FORM: PER ORAL AGENT
     Route: 048
     Dates: start: 20081107, end: 20081205
  13. PREDNISOLONE [Concomitant]
     Dosage: DOSE FORM: PER ORAL AGENT
     Route: 048
     Dates: start: 20091219
  14. POLARAMINE [Concomitant]
     Dosage: FORM: PERORAL AGENT
     Route: 048
     Dates: start: 20080815
  15. TANATRIL [Concomitant]
     Route: 048
  16. BENET [Concomitant]
     Route: 048
  17. LIPITOR [Concomitant]
     Route: 048
  18. SELBEX [Concomitant]
     Dosage: FORM: PERORAL AGENT
     Route: 048
  19. FOLIAMIN [Concomitant]
     Dosage: FORM: PERORAL AGENT
     Route: 048
  20. AMLODIPINE BESYLATE [Concomitant]
     Route: 048
     Dates: end: 20081204
  21. AMLODIPINE BESYLATE [Concomitant]
     Route: 048
     Dates: start: 20081205
  22. LOXONIN [Concomitant]
     Dosage: FORM: TAPE, NOTE: PROPERLY
     Route: 062

REACTIONS (5)
  - B-CELL LYMPHOMA [None]
  - LOCALISED INFECTION [None]
  - PRURITUS [None]
  - RASH [None]
  - RHEUMATOID ARTHRITIS [None]
